FAERS Safety Report 13276089 (Version 8)
Quarter: 2018Q2

REPORT INFORMATION
  Report Type: Spontaneous
  Country: US (occurrence: US)
  Receive Date: 20170228
  Receipt Date: 20180508
  Transmission Date: 20180711
  Serious: Yes (Disabling)
  Sender: FDA-Public Use
  Company Number: US-JNJFOC-20170215837

PATIENT
  Age: 81 Year
  Sex: Female
  Weight: 68.04 kg

DRUGS (6)
  1. GLUCOSAMINE [Concomitant]
     Active Substance: GLUCOSAMINE
     Indication: ARTHRITIS
     Route: 065
     Dates: start: 201701
  2. LEVAQUIN [Suspect]
     Active Substance: LEVOFLOXACIN
     Indication: PNEUMONIA
     Dosage: DAILY FOR 10 DAYS
     Route: 048
     Dates: start: 20170117, end: 20170124
  3. ASPIRIN. [Concomitant]
     Active Substance: ASPIRIN
     Route: 065
     Dates: start: 201701
  4. ROCEPHIN [Concomitant]
     Active Substance: CEFTRIAXONE SODIUM
     Indication: PNEUMONIA
     Route: 065
     Dates: start: 20170117
  5. HYDROCODONE [Concomitant]
     Active Substance: HYDROCODONE
     Indication: SPINAL FUSION SURGERY
     Route: 065
     Dates: start: 1990
  6. LEVAQUIN [Suspect]
     Active Substance: LEVOFLOXACIN
     Indication: LOWER RESPIRATORY TRACT INFECTION
     Dosage: DAILY FOR 10 DAYS
     Route: 048
     Dates: start: 20170117, end: 20170124

REACTIONS (16)
  - Tendonitis [Unknown]
  - General physical health deterioration [Not Recovered/Not Resolved]
  - Pelvic pain [Not Recovered/Not Resolved]
  - Tendon pain [Unknown]
  - Hypotension [Recovered/Resolved]
  - Arthralgia [Not Recovered/Not Resolved]
  - Humerus fracture [Unknown]
  - Headache [Unknown]
  - Drug ineffective [Unknown]
  - Syncope [Unknown]
  - Arthritis [Unknown]
  - Sleep disorder [Not Recovered/Not Resolved]
  - Conjunctivitis [Not Recovered/Not Resolved]
  - Muscular weakness [Not Recovered/Not Resolved]
  - Dizziness [Unknown]
  - Musculoskeletal stiffness [Not Recovered/Not Resolved]

NARRATIVE: CASE EVENT DATE: 2017
